FAERS Safety Report 25023676 (Version 2)
Quarter: 2025Q1

REPORT INFORMATION
  Report Type: Report from Study
  Country: US (occurrence: US)
  Receive Date: 20250228
  Receipt Date: 20250314
  Transmission Date: 20250408
  Serious: Yes (Other)
  Sender: IONIS PHARMACEUTICALS
  Company Number: US-IONIS PHARMACEUTICALS, INC.-2025IS000591

PATIENT

DRUGS (1)
  1. TRYNGOLZA [Suspect]
     Active Substance: OLEZARSEN SODIUM
     Indication: Familial hypertriglyceridaemia
     Dosage: 80 MILLIGRAM, Q1M
     Route: 058
     Dates: start: 20250114

REACTIONS (3)
  - Wound [Unknown]
  - Blood glucose increased [Recovered/Resolved]
  - Blindness transient [Recovered/Resolved]

NARRATIVE: CASE EVENT DATE: 20250218
